FAERS Safety Report 22054982 (Version 2)
Quarter: 2023Q1

REPORT INFORMATION
  Report Type: Spontaneous
  Country: JP (occurrence: JP)
  Receive Date: 20230302
  Receipt Date: 20230317
  Transmission Date: 20230418
  Serious: Yes (Hospitalization, Other)
  Sender: FDA-Public Use
  Company Number: JP-ONO-2023JP001254

PATIENT
  Age: 84 Year
  Sex: Male
  Weight: 48 kg

DRUGS (7)
  1. SITAGLIPTIN [Suspect]
     Active Substance: SITAGLIPTIN
     Dosage: 50 MG, EVERYDAY
     Route: 048
  2. OPDIVO [Suspect]
     Active Substance: NIVOLUMAB
     Indication: Gastric cancer
     Dosage: 240 MG, Q2W
     Route: 041
     Dates: start: 20220822, end: 20221219
  3. AMLODIPINE [Concomitant]
     Active Substance: AMLODIPINE BESYLATE
     Dosage: 2.5 MG, EVERYDAY
     Route: 048
     Dates: end: 20230113
  4. URSODIOL [Concomitant]
     Active Substance: URSODIOL
     Dosage: 100 MG, Q8H
     Route: 048
     Dates: start: 20220926, end: 20230113
  5. GLIMEPIRIDE [Concomitant]
     Active Substance: GLIMEPIRIDE
     Dosage: 0.5 MG, EVERYDAY
     Route: 048
     Dates: start: 20221219, end: 20230113
  6. ACETAMINOPHEN [Concomitant]
     Active Substance: ACETAMINOPHEN
     Dosage: 500 MG, Q8H
     Route: 048
     Dates: start: 20230105, end: 20230109
  7. CEFDITOREN PIVOXIL [Concomitant]
     Active Substance: CEFDITOREN PIVOXIL
     Dosage: 100 MG, Q8H
     Route: 048
     Dates: start: 20230105, end: 20230109

REACTIONS (3)
  - Interstitial lung disease [Recovering/Resolving]
  - Immune thrombocytopenia [Recovering/Resolving]
  - Nasopharyngitis [Unknown]

NARRATIVE: CASE EVENT DATE: 20230105
